FAERS Safety Report 7763368-4 (Version None)
Quarter: 2011Q3

REPORT INFORMATION
  Report Type: 
  Country: None (occurrence: None)
  Receive Date: 20110920
  Receipt Date: 20110912
  Transmission Date: 20111222
  Serious: Yes (Other)
  Sender: FDA-Public Use
  Company Number: US-AMGEN-USASP2011046689

PATIENT
  Age: 28 Year
  Sex: Male

DRUGS (2)
  1. ENBREL [Suspect]
     Indication: PSORIATIC ARTHROPATHY
     Dosage: 50 MG, QWK
     Dates: start: 20110724
  2. METHOTREXATE [Concomitant]
     Dosage: 8 MG, UNK

REACTIONS (8)
  - FEELING ABNORMAL [None]
  - INJECTION SITE REACTION [None]
  - INJECTION SITE RASH [None]
  - COLD SWEAT [None]
  - MENTAL IMPAIRMENT [None]
  - TACHYCARDIA [None]
  - STRESS [None]
  - CHEST PAIN [None]
